FAERS Safety Report 6236919-9 (Version None)
Quarter: 2009Q2

REPORT INFORMATION
  Report Type: 
  Country: None (occurrence: None)
  Receive Date: 20090619
  Receipt Date: 20090217
  Transmission Date: 20091009
  Serious: No
  Sender: FDA-Public Use
  Company Number: US-ASTRAZENECA-2008UW26501

PATIENT
  Age: 56 Year
  Sex: Female
  Weight: 82.6 kg

DRUGS (14)
  1. SYMBICORT [Suspect]
     Indication: BRONCHOPNEUMONIA
     Dosage: 160/4.5 MCG 60 INHALATIONS
     Route: 055
  2. AVELOX [Concomitant]
  3. PROAIR HFA [Concomitant]
  4. DETROL LA [Concomitant]
  5. PREMARIN [Concomitant]
  6. REQUIP [Concomitant]
  7. LAMICTAL [Concomitant]
  8. RESPIDOL [Concomitant]
  9. TRAZODONE HCL [Concomitant]
  10. TRIAMTERENE AND HYDROCHLOROTHIAZIDE [Concomitant]
  11. PROMETHAZINE [Concomitant]
  12. CYMBALTA [Concomitant]
  13. BENTYL [Concomitant]
  14. KLONOPIN [Concomitant]

REACTIONS (1)
  - FOREIGN BODY TRAUMA [None]
